FAERS Safety Report 19949878 (Version 1)
Quarter: 2021Q4

REPORT INFORMATION
  Report Type: Spontaneous
  Country: JP (occurrence: JP)
  Receive Date: 20211013
  Receipt Date: 20211013
  Transmission Date: 20220303
  Serious: Yes (Hospitalization, Other)
  Sender: FDA-Public Use
  Company Number: None

PATIENT
  Age: 44 Year
  Sex: Male

DRUGS (4)
  1. OLANZAPINE [Suspect]
     Active Substance: OLANZAPINE
     Indication: Schizophrenia
     Dosage: 30 MILLIGRAM, QD
     Route: 065
  2. QUETIAPINE FUMARATE [Suspect]
     Active Substance: QUETIAPINE FUMARATE
     Indication: Schizophrenia
     Dosage: 200 MILLIGRAM, QD
     Route: 065
  3. QUETIAPINE FUMARATE [Suspect]
     Active Substance: QUETIAPINE FUMARATE
     Dosage: 600 MILLIGRAM, QD
     Route: 065
  4. RISPERIDONE [Suspect]
     Active Substance: RISPERIDONE
     Indication: Schizophrenia
     Dosage: 8 MILLIGRAM, QD
     Route: 065

REACTIONS (9)
  - Rebound psychosis [Recovering/Resolving]
  - Tardive dyskinesia [Recovering/Resolving]
  - Akathisia [Recovering/Resolving]
  - Dysphemia [Recovering/Resolving]
  - Psychotic symptom [Recovering/Resolving]
  - Extrapyramidal disorder [Recovering/Resolving]
  - Oromandibular dystonia [Recovering/Resolving]
  - Therapeutic product effect incomplete [Unknown]
  - Drug resistance [Unknown]
